FAERS Safety Report 19423794 (Version 2)
Quarter: 2021Q3

REPORT INFORMATION
  Report Type: Spontaneous
  Country: GB (occurrence: GB)
  Receive Date: 20210616
  Receipt Date: 20210806
  Transmission Date: 20211014
  Serious: Yes (Other)
  Sender: FDA-Public Use
  Company Number: GB-AUROBINDO-AUR-APL-2021-024947

PATIENT
  Age: 46 Year
  Sex: Male
  Weight: 70 kg

DRUGS (4)
  1. IBUPROFEN. [Suspect]
     Active Substance: IBUPROFEN
     Indication: ABDOMINAL PAIN
     Dosage: 6 DOSAGE FORM, ONCE A DAY
     Route: 065
  2. NUROFEN [Suspect]
     Active Substance: IBUPROFEN
     Indication: PRODUCT USED FOR UNKNOWN INDICATION
     Dosage: 200 (200 MG LIQUID CAPSULES)
     Route: 065
  3. CHAMOMILE [Concomitant]
     Active Substance: CHAMOMILE
     Indication: IRRITABLE BOWEL SYNDROME
     Dosage: 1 DOSAGE FORM, 3 TIMES A DAY
     Route: 065
  4. ASTRAZENECA COVID?19 VACCINE [Suspect]
     Active Substance: AZD-1222
     Indication: PRODUCT USED FOR UNKNOWN INDICATION
     Dosage: UNK (DOSE 1)
     Route: 065
     Dates: start: 20210522

REACTIONS (9)
  - Chills [Unknown]
  - Abdominal pain [Not Recovered/Not Resolved]
  - Hyperhidrosis [Unknown]
  - Thrombosis [Not Recovered/Not Resolved]
  - Headache [Not Recovered/Not Resolved]
  - Nausea [Not Recovered/Not Resolved]
  - Irritable bowel syndrome [Not Recovered/Not Resolved]
  - Dizziness [Unknown]
  - Myalgia [Unknown]

NARRATIVE: CASE EVENT DATE: 20210522
